FAERS Safety Report 14918907 (Version 1)
Quarter: 2018Q2

REPORT INFORMATION
  Report Type: Spontaneous
  Country: US (occurrence: US)
  Receive Date: 20180521
  Receipt Date: 20180521
  Transmission Date: 20180711
  Serious: No
  Sender: FDA-Public Use
  Company Number: US-BION-006782

PATIENT
  Age: 79 Year
  Sex: Male
  Weight: 77.11 kg

DRUGS (1)
  1. MOTRIN IB [Suspect]
     Active Substance: IBUPROFEN
     Dosage: 1 LIQUID GEL
     Route: 048
     Dates: start: 20171117, end: 20171117

REACTIONS (2)
  - Intentional product misuse [Not Recovered/Not Resolved]
  - Oral discomfort [Recovered/Resolved]

NARRATIVE: CASE EVENT DATE: 20171117
